FAERS Safety Report 25660734 (Version 1)
Quarter: 2025Q3

REPORT INFORMATION
  Report Type: Spontaneous
  Country: JP (occurrence: JP)
  Receive Date: 20250808
  Receipt Date: 20250808
  Transmission Date: 20251020
  Serious: Yes (Other)
  Sender: RANBAXY
  Company Number: JP-SUN PHARMACEUTICAL INDUSTRIES INC-2025R1-521986

PATIENT
  Age: 8 Year
  Sex: Female
  Weight: 27.9 kg

DRUGS (4)
  1. DEXAMETHASONE [Suspect]
     Active Substance: DEXAMETHASONE
     Indication: Acute lymphocytic leukaemia
     Route: 065
  2. ASPARAGINASE [Concomitant]
     Active Substance: ASPARAGINASE
     Indication: Acute lymphocytic leukaemia
     Route: 065
  3. ASPARAGINASE [Concomitant]
     Active Substance: ASPARAGINASE
     Route: 065
  4. VITAMIN D3 [Concomitant]
     Active Substance: CHOLECALCIFEROL
     Indication: Acute lymphocytic leukaemia
     Dosage: UNK MICROGRAM, QD
     Route: 065

REACTIONS (1)
  - Osteonecrosis [Recovered/Resolved]
